FAERS Safety Report 11586181 (Version 2)
Quarter: 2015Q4

REPORT INFORMATION
  Report Type: Spontaneous
  Country: US (occurrence: US)
  Receive Date: 20151001
  Receipt Date: 20151008
  Transmission Date: 20160304
  Serious: No
  Sender: FDA-Public Use
  Company Number: GXBR2015US001978

PATIENT
  Sex: Female
  Weight: 62.59 kg

DRUGS (1)
  1. TRI-ESTARYLLA [Suspect]
     Active Substance: ETHINYL ESTRADIOL\NORGESTIMATE
     Indication: ORAL CONTRACEPTION
     Dosage: 1 DF, QD
     Route: 048
     Dates: start: 20150810

REACTIONS (2)
  - Urticaria [Recovering/Resolving]
  - Pruritus [Recovering/Resolving]
